FAERS Safety Report 18234726 (Version 3)
Quarter: 2021Q1

REPORT INFORMATION
  Report Type: Report from Study
  Country: CA (occurrence: CA)
  Receive Date: 20200904
  Receipt Date: 20210313
  Transmission Date: 20210419
  Serious: Yes (Other)
  Sender: FDA-Public Use
  Company Number: PHHY2014CA016732

PATIENT
  Age: 62 Year
  Sex: Male

DRUGS (11)
  1. TELMISARTAN. [Suspect]
     Active Substance: TELMISARTAN
     Indication: PRODUCT USED FOR UNKNOWN INDICATION
     Dosage: 40 MG), QD (INDICATION: MICARDI BUT CAN SUBSTITUTE GENERIC ALTERNATIVE)
     Route: 048
  2. PANTOPRAZOLE [Suspect]
     Active Substance: PANTOPRAZOLE
     Indication: PRODUCT USED FOR UNKNOWN INDICATION
     Dosage: 40 MG, QD (INDICATION: PANTALOC, BUT CAN SUBSTITUTE GENERIC ALTERNATIVE)
     Route: 048
  3. FRAMYCETIN [Concomitant]
     Active Substance: FRAMYCETIN
     Indication: PRODUCT USED FOR UNKNOWN INDICATION
     Dosage: UNK, Q4H
     Route: 061
  4. SANDOSTATIN LAR DEPOT [Suspect]
     Active Substance: OCTREOTIDE ACETATE
     Dosage: 30 MG, Q3W
     Route: 030
     Dates: start: 20130820
  5. ATORVASTATIN [Suspect]
     Active Substance: ATORVASTATIN
     Indication: PRODUCT USED FOR UNKNOWN INDICATION
     Dosage: 40 MG, QHS (INDICATION: LIPITOR BUT CAN SUBSTITUE GENERIC ALT)
     Route: 048
  6. VENLAFAXINE [Suspect]
     Active Substance: VENLAFAXINE HYDROCHLORIDE
     Indication: PRODUCT USED FOR UNKNOWN INDICATION
     Dosage: 150 MG, QD (INDICATION: EFFEXOR BUT CAN SUBSTITUTE GENERIC ALTERNATIVE)
     Route: 048
  7. SANDOSTATIN LAR DEPOT [Suspect]
     Active Substance: OCTREOTIDE ACETATE
     Indication: ACROMEGALY
     Dosage: 30 MG, Q3W
     Route: 030
     Dates: start: 20070807
  8. ESCULIN [Concomitant]
     Active Substance: ESCULIN
     Indication: PRODUCT USED FOR UNKNOWN INDICATION
     Dosage: UNK, Q4H
     Route: 061
  9. SANDOSTATIN LAR DEPOT [Suspect]
     Active Substance: OCTREOTIDE ACETATE
  10. METFORMIN [Concomitant]
     Active Substance: METFORMIN HYDROCHLORIDE
     Indication: PRODUCT USED FOR UNKNOWN INDICATION
     Dosage: 500 MG, BID (INDICATION: APO?METFORMIN BUT CAN SUBSTITUTE GENERIC ALT)
     Route: 065
  11. DIBUCAINE. [Concomitant]
     Active Substance: DIBUCAINE
     Indication: PRODUCT USED FOR UNKNOWN INDICATION
     Dosage: UNK, Q4H
     Route: 061

REACTIONS (10)
  - Diverticulitis [Unknown]
  - Blood pressure increased [Unknown]
  - Drug ineffective [Unknown]
  - Blood pressure systolic increased [Unknown]
  - Contusion [Unknown]
  - Body temperature decreased [Unknown]
  - Crohn^s disease [Unknown]
  - Back pain [Unknown]
  - Needle issue [Unknown]
  - Inappropriate schedule of product administration [Unknown]

NARRATIVE: CASE EVENT DATE: 20070807
